FAERS Safety Report 6600980-X (Version None)
Quarter: 2010Q1

REPORT INFORMATION
  Report Type: 
  Country: None (occurrence: None)
  Receive Date: 20100225
  Receipt Date: 20100216
  Transmission Date: 20100710
  Serious: Yes (Hospitalization)
  Sender: FDA-Public Use
  Company Number: US-B.I. PHARMACEUTICALS,INC./RIDGEFIELD-2010-DE-01092GD

PATIENT
  Age: 34 Year
  Sex: Female

DRUGS (6)
  1. CLONIDINE [Suspect]
     Indication: PAIN
     Route: 037
  2. CLONIDINE [Suspect]
     Dosage: 2809 MG
     Route: 037
  3. FENTANYL [Suspect]
     Indication: PAIN
     Route: 037
  4. FENTANYL [Suspect]
     Dosage: 3745 MCG
     Route: 037
  5. BUPIVACAINE HCL [Suspect]
     Indication: PAIN
     Route: 037
  6. BUPIVACAINE HCL [Suspect]
     Dosage: 37.45 MG
     Route: 037

REACTIONS (8)
  - ANAESTHESIA [None]
  - HYPOAESTHESIA [None]
  - MASS [None]
  - MEDICAL DEVICE COMPLICATION [None]
  - NECK PAIN [None]
  - PAIN IN EXTREMITY [None]
  - QUADRIPARESIS [None]
  - SPINAL CORD COMPRESSION [None]
